FAERS Safety Report 6647826-1 (Version None)
Quarter: 2010Q1

REPORT INFORMATION
  Report Type: 
  Country: None (occurrence: None)
  Receive Date: 20100324
  Receipt Date: 20100311
  Transmission Date: 20100710
  Serious: Yes (Hospitalization)
  Sender: FDA-Public Use
  Company Number: US-SOLVAY-00210000197

PATIENT
  Age: 51 Year
  Sex: Male
  Weight: 104 kg

DRUGS (10)
  1. METOPROLOL [Concomitant]
     Indication: HYPERTENSION
     Dosage: DAILY DOSE: 25 MILLIGRAM(S)
     Route: 048
  2. LIPITOR [Concomitant]
     Indication: BLOOD CHOLESTEROL INCREASED
     Dosage: DAILY DOSE: 80 MILLIGRAM(S)
     Route: 048
  3. ANDROGEL [Suspect]
     Indication: BLOOD TESTOSTERONE DECREASED
     Dosage: DAILY DOSE: 5 GRAM(S), VIA PUMP
     Route: 062
     Dates: start: 20080101, end: 20080101
  4. ANDROGEL [Suspect]
     Dosage: DAILY DOSE: 2.5 GRAM(S), VIA PUMP
     Route: 062
     Dates: start: 20080101, end: 20080101
  5. ANDROGEL [Suspect]
     Dosage: DAILY DOSE: 5 GRAM(S), VIA PUMP
     Route: 062
     Dates: start: 20080101, end: 20090701
  6. ANDROGEL [Suspect]
     Dosage: DAILY DOSE: 6.25 GRAM(S), VIA PUMP
     Route: 062
     Dates: start: 20090701, end: 20090801
  7. ANDROGEL [Suspect]
     Dosage: DAILY DOSE: 2.5 GRAM(S), VIA PUMP
     Route: 062
     Dates: start: 20091001
  8. ANDROGEL [Suspect]
     Dosage: DAILY DOSE: 5 GRAM(S), VIA PUMP
     Route: 062
     Dates: end: 20100101
  9. ANDROGEL [Suspect]
     Dosage: DAILY DOSE: 7.5 GRAM(S), VIA PUMP
     Route: 062
     Dates: start: 20100101, end: 20100101
  10. ANDROGEL [Suspect]
     Dosage: DAILY DOSE: 5-6.25 GRAM(S), AS USED: 5-6 PUMPS, FREQUENCY: ONCE A DAY
     Route: 062
     Dates: start: 20100101

REACTIONS (3)
  - ACNE [None]
  - MYOCARDIAL INFARCTION [None]
  - NERVOUSNESS [None]
